FAERS Safety Report 10346782 (Version 1)
Quarter: 2014Q3

REPORT INFORMATION
  Report Type: Other
  Country: DE (occurrence: DE)
  Receive Date: 20140729
  Receipt Date: 20140729
  Transmission Date: 20150326
  Serious: Yes (Congenital Anomaly, Other)
  Sender: FDA-Public Use
  Company Number: DE-LUPIN PHARMACEUTICALS INC.-E2B_00002305

PATIENT

DRUGS (2)
  1. FOLSAN [Concomitant]
     Active Substance: FOLIC ACID
     Indication: PROPHYLAXIS OF NEURAL TUBE DEFECT
     Dosage: 0.4 MG
     Route: 064
     Dates: start: 20140315, end: 20140520
  2. LAMOTRIGIN [Suspect]
     Active Substance: LAMOTRIGINE
     Indication: BORDERLINE PERSONALITY DISORDER
     Dosage: 100 MG
     Route: 064
     Dates: start: 20140217, end: 20140331

REACTIONS (4)
  - Kyphoscoliosis [Not Recovered/Not Resolved]
  - Umbilical cord short [Not Recovered/Not Resolved]
  - Exomphalos [Not Recovered/Not Resolved]
  - Foetal exposure during pregnancy [Unknown]

NARRATIVE: CASE EVENT DATE: 20140217
